FAERS Safety Report 6619937-8 (Version None)
Quarter: 2010Q1

REPORT INFORMATION
  Report Type: 
  Country: None (occurrence: None)
  Receive Date: 20100223
  Receipt Date: 20100114
  Transmission Date: 20100710
  Serious: No
  Sender: FDA-Public Use
  Company Number: 004901

PATIENT
  Sex: Male

DRUGS (1)
  1. CIMZIA [Suspect]
     Indication: CROHN'S DISEASE
     Dosage: (400MG SUBCUTANEOUS)
     Route: 058
     Dates: start: 20090806

REACTIONS (2)
  - ARTHRALGIA [None]
  - PYREXIA [None]
